FAERS Safety Report 15283696 (Version 1)
Quarter: 2018Q4

REPORT INFORMATION
  Report Type: Spontaneous
  Country: NL (occurrence: NL)
  Receive Date: 20180816
  Receipt Date: 20180816
  Transmission Date: 20190204
  Serious: Yes (Other)
  Sender: FDA-Public Use
  Company Number: NL-TEVA-2018-NL-941351

PATIENT
  Age: 41 Year
  Sex: Male
  Weight: 102 kg

DRUGS (1)
  1. PROPOFOL EMULSIE VOOR INJECTIE, 20 MG/ML (MILLIGRAM PER MILLILITER) [Suspect]
     Active Substance: PROPOFOL
     Indication: ANAESTHESIA
     Dosage: NARCOSE
     Route: 065
     Dates: start: 20180627

REACTIONS (2)
  - Dyspnoea [Recovered/Resolved]
  - Oxygen saturation decreased [Recovered/Resolved]

NARRATIVE: CASE EVENT DATE: 20180627
